FAERS Safety Report 20383620 (Version 3)
Quarter: 2022Q1

REPORT INFORMATION
  Report Type: Spontaneous
  Country: US (occurrence: US)
  Receive Date: 20220127
  Receipt Date: 20220311
  Transmission Date: 20220423
  Serious: Yes (Other)
  Sender: FDA-Public Use
  Company Number: US-009507513-2201USA006038

PATIENT
  Age: 46 Year
  Sex: Male
  Weight: 118.82 kg

DRUGS (16)
  1. SIVEXTRO [Suspect]
     Active Substance: TEDIZOLID PHOSPHATE
     Indication: Staphylococcal infection
     Dosage: 200 MILLIGRAM DAILY
     Route: 048
     Dates: start: 20211224, end: 20220202
  2. PRINIVIL [Concomitant]
     Active Substance: LISINOPRIL
     Dosage: UNK
     Route: 048
  3. BACTRIM [Concomitant]
     Active Substance: SULFAMETHOXAZOLE\TRIMETHOPRIM
     Dosage: UNK
  4. ACETAMINOPHEN\HYDROCODONE [Concomitant]
     Active Substance: ACETAMINOPHEN\HYDROCODONE
     Dosage: UNK
  5. CEPHALEXIN [Concomitant]
     Active Substance: CEPHALEXIN
     Dosage: UNK
  6. DOXYCYCLINE HYCLATE [Concomitant]
     Active Substance: DOXYCYCLINE HYCLATE
     Dosage: UNK
  7. CLINDAMYCIN HYDROCHLORIDE [Concomitant]
     Active Substance: CLINDAMYCIN HYDROCHLORIDE
     Dosage: UNK
  8. NEXIUM 24HR [Concomitant]
     Active Substance: ESOMEPRAZOLE MAGNESIUM
     Dosage: UNK
  9. CARVEDILOL [Concomitant]
     Active Substance: CARVEDILOL
     Dosage: UNK
  10. ASPIRIN [Concomitant]
     Active Substance: ASPIRIN
     Dosage: UNK
  11. ACARBOSE [Concomitant]
     Active Substance: ACARBOSE
     Dosage: UNK
  12. TORSEMIDE [Concomitant]
     Active Substance: TORSEMIDE
     Dosage: UNK
  13. AMLODIPINE [Concomitant]
     Active Substance: AMLODIPINE BESYLATE
     Dosage: UNK
  14. POTASSIUM AMINOBENZOATE [Concomitant]
     Dosage: UNK
  15. GABAPENTIN [Concomitant]
     Active Substance: GABAPENTIN
     Dosage: UNK
     Route: 048
  16. LIDOCAINE [Concomitant]
     Active Substance: LIDOCAINE
     Dosage: UNK, TOPICAL PATCH KIT

REACTIONS (14)
  - Osteomyelitis [Unknown]
  - Muscle necrosis [Unknown]
  - Erythema [Recovered/Resolved]
  - Rash pruritic [Recovered/Resolved]
  - Limb injury [Unknown]
  - Diabetic mononeuropathy [Unknown]
  - Diabetic foot [Unknown]
  - Peripheral nerve lesion [Unknown]
  - Tarsal tunnel syndrome [Unknown]
  - Pain in extremity [Unknown]
  - Localised infection [Unknown]
  - Nail dystrophy [Unknown]
  - Dermatophytosis of nail [Unknown]
  - Urticaria [Unknown]

NARRATIVE: CASE EVENT DATE: 20211229
